FAERS Safety Report 9464140 (Version 1)
Quarter: 2013Q3

REPORT INFORMATION
  Report Type: Spontaneous
  Country: CA (occurrence: CA)
  Receive Date: 20130819
  Receipt Date: 20130819
  Transmission Date: 20140515
  Serious: Yes (Life-Threatening, Hospitalization)
  Sender: FDA-Public Use
  Company Number: CA-ROCHE-1262030

PATIENT
  Age: 46 Year
  Sex: Male
  Weight: 72.64 kg

DRUGS (15)
  1. CELLCEPT [Suspect]
     Indication: PRODUCT USED FOR UNKNOWN INDICATION
     Route: 065
  2. CELLCEPT [Suspect]
     Route: 065
  3. ALLOPURINOL [Suspect]
     Indication: PRODUCT USED FOR UNKNOWN INDICATION
     Route: 065
  4. ARANESP [Suspect]
     Indication: PRODUCT USED FOR UNKNOWN INDICATION
     Route: 058
  5. ARANESP [Suspect]
     Route: 058
  6. EPREX [Suspect]
     Indication: PRODUCT USED FOR UNKNOWN INDICATION
     Route: 065
  7. ONE ALPHA [Suspect]
     Indication: PRODUCT USED FOR UNKNOWN INDICATION
     Route: 065
  8. ATACAND [Concomitant]
     Route: 065
  9. CARDURA [Concomitant]
     Route: 065
  10. IMURAN [Concomitant]
     Route: 065
  11. LASIX [Concomitant]
     Route: 065
  12. LOPRESOR [Concomitant]
     Route: 065
  13. MYFORTIC [Concomitant]
     Route: 065
  14. NORVASC [Concomitant]
     Route: 065
  15. PANTOLOC [Concomitant]
     Route: 065

REACTIONS (3)
  - Anti-erythropoietin antibody negative [Unknown]
  - Aplasia pure red cell [Unknown]
  - Haemoglobin decreased [Unknown]
